FAERS Safety Report 4747167-3 (Version None)
Quarter: 2005Q3

REPORT INFORMATION
  Report Type: 
  Country: None (occurrence: None)
  Receive Date: 20050815
  Receipt Date: 20050803
  Transmission Date: 20060218
  Serious: Yes (Hospitalization)
  Sender: FDA-Public Use
  Company Number: CHP2005US02015

PATIENT
  Age: 20 Year
  Sex: Male
  Weight: 86.2 kg

DRUGS (12)
  1. PRIVATE LABEL STEP 1 21MG (NCH) (NICOTINE) TRANS-THERAPEUTIC-SYSTEM [Suspect]
     Indication: SMOKING CESSATION THERAPY
     Dosage: 21 MG, TRANSDERMAL
     Route: 062
     Dates: start: 20050510, end: 20050518
  2. PRIVATE LABEL STEP 1 21MG (NCH) (NICOTINE) TRANS-THERAPEUTIC-SYSTEM [Suspect]
     Indication: SMOKING CESSATION THERAPY
     Dosage: 21 MG, TRANSDERMAL
     Route: 062
     Dates: start: 20050325
  3. NICOTINE [Suspect]
     Indication: SMOKING CESSATION THERAPY
     Dosage: 14 MG, TRANSDERMAL
     Route: 062
  4. PRIVATE LABEL STEP 3 7MG ACCT NCH (NCH) (NICOTINE) TRANS-THERAPEUTIC-S [Suspect]
     Indication: SMOKING CESSATION THERAPY
     Dosage: 7 MG, TRANSDERMAL
     Route: 062
  5. CARDIZEM CD [Concomitant]
  6. TENORMIN [Concomitant]
  7. HALDOL (HALOPERIDOL DECANOATE) [Concomitant]
  8. COGENTIN [Concomitant]
  9. ATIVAN [Concomitant]
  10. PAMELOR [Concomitant]
  11. ARICEPT [Concomitant]
  12. SEROQUEL [Concomitant]

REACTIONS (5)
  - DEPRESSION [None]
  - INFECTION [None]
  - PLASMA VISCOSITY DECREASED [None]
  - PULMONARY EMBOLISM [None]
  - PULMONARY THROMBOSIS [None]
